FAERS Safety Report 20621807 (Version 5)
Quarter: 2023Q1

REPORT INFORMATION
  Report Type: Report from Study
  Country: CA (occurrence: CA)
  Receive Date: 20220322
  Receipt Date: 20230331
  Transmission Date: 20230417
  Serious: Yes (Other)
  Sender: FDA-Public Use
  Company Number: CA-NOVARTISPH-NVSC2021CA271264

PATIENT
  Age: 64 Year
  Sex: Male

DRUGS (3)
  1. HYRIMOZ [Suspect]
     Active Substance: ADALIMUMAB-ADAZ
     Indication: Crohn^s disease
     Dosage: 160 MG
     Route: 058
     Dates: start: 20211109
  2. HYRIMOZ [Suspect]
     Active Substance: ADALIMUMAB-ADAZ
     Dosage: 40 MG, QW
     Route: 058
  3. BUDESONIDE [Concomitant]
     Active Substance: BUDESONIDE
     Indication: Product used for unknown indication
     Dosage: UNK (WOULD COMPLETE THE TAPER AND THEN STOP)
     Route: 065
     Dates: start: 202107

REACTIONS (18)
  - Ileal stenosis [Unknown]
  - Ileal ulcer [Unknown]
  - Renal impairment [Unknown]
  - Crohn^s disease [Unknown]
  - Faecal calprotectin increased [Unknown]
  - Gastrointestinal mucosa hyperaemia [Unknown]
  - Bowel movement irregularity [Unknown]
  - Enteritis [Unknown]
  - Large intestine polyp [Unknown]
  - Frequent bowel movements [Unknown]
  - Diarrhoea [Unknown]
  - Abdominal discomfort [Unknown]
  - Abdominal pain [Unknown]
  - Fatigue [Unknown]
  - Abdominal pain lower [Unknown]
  - Product supply issue [Unknown]
  - Product dose omission issue [Unknown]
  - Therapeutic response decreased [Unknown]

NARRATIVE: CASE EVENT DATE: 20220601
